FAERS Safety Report 12560129 (Version 2)
Quarter: 2016Q3

REPORT INFORMATION
  Report Type: Spontaneous
  Country: US (occurrence: US)
  Receive Date: 20160715
  Receipt Date: 20160822
  Transmission Date: 20161109
  Serious: No
  Sender: FDA-Public Use
  Company Number: US-JNJFOC-20160615677

PATIENT
  Age: 67 Year
  Sex: Female
  Weight: 56.7 kg

DRUGS (2)
  1. WOMENS ROGAINE UNSCENTED [Suspect]
     Active Substance: MINOXIDIL
     Route: 061
  2. WOMENS ROGAINE UNSCENTED [Suspect]
     Active Substance: MINOXIDIL
     Indication: ALOPECIA
     Dosage: 1/2 CAPFUL
     Route: 061
     Dates: start: 20160515, end: 20160601

REACTIONS (6)
  - Scab [Recovering/Resolving]
  - Skin burning sensation [Recovering/Resolving]
  - Pruritus [Recovering/Resolving]
  - Blister [Recovering/Resolving]
  - Erythema [Recovering/Resolving]
  - Skin lesion [Recovering/Resolving]

NARRATIVE: CASE EVENT DATE: 20160515
